FAERS Safety Report 6212271-X (Version None)
Quarter: 2009Q2

REPORT INFORMATION
  Report Type: 
  Country: None (occurrence: None)
  Receive Date: 20090529
  Receipt Date: 20090519
  Transmission Date: 20091009
  Serious: Yes (Death, Life-Threatening, Hospitalization)
  Sender: FDA-Public Use
  Company Number: ADE#  09-234DPR

PATIENT
  Age: 82 Year
  Sex: Female

DRUGS (3)
  1. DIGOXIN [Suspect]
     Indication: ATRIAL FIBRILLATION
     Dosage: ONE TABLET DAILY
     Dates: start: 20080801
  2. VERAPAMIL [Concomitant]
  3. FUROSEMIDE [Concomitant]

REACTIONS (6)
  - ASTHENIA [None]
  - CARDIOACTIVE DRUG LEVEL INCREASED [None]
  - DYSPNOEA [None]
  - LETHARGY [None]
  - PULMONARY OEDEMA [None]
  - RESPIRATORY FAILURE [None]
